FAERS Safety Report 8234072-3 (Version None)
Quarter: 2012Q1

REPORT INFORMATION
  Report Type: 
  Country: None (occurrence: None)
  Receive Date: 20120326
  Receipt Date: 20120326
  Transmission Date: 20120608
  Serious: Yes (Other)
  Sender: FDA-Public Use
  Company Number: None

PATIENT
  Age: 37 Year
  Sex: Female
  Weight: 53.523 kg

DRUGS (1)
  1. EXHILARIN (ASHWAGADHA) [Suspect]
     Indication: PHYTOTHERAPY
     Dosage: 615.0 MG
     Route: 048
     Dates: start: 20090501, end: 20090701

REACTIONS (6)
  - PARAESTHESIA [None]
  - DYSKINESIA [None]
  - ABDOMINAL DISCOMFORT [None]
  - INSOMNIA [None]
  - MYOCLONUS [None]
  - DRUG WITHDRAWAL SYNDROME [None]
